FAERS Safety Report 23814588 (Version 1)
Quarter: 2024Q2

REPORT INFORMATION
  Report Type: Spontaneous
  Country: ES (occurrence: ES)
  Receive Date: 20240503
  Receipt Date: 20240503
  Transmission Date: 20240716
  Serious: Yes (Hospitalization)
  Sender: FDA-Public Use
  Company Number: None

PATIENT
  Age: 66 Year
  Sex: Female
  Weight: 64 kg

DRUGS (2)
  1. SIMVASTATIN [Suspect]
     Active Substance: SIMVASTATIN
     Indication: Dyslipidaemia
     Dosage: SIMVASTATIN (1023A)
     Route: 048
     Dates: start: 20230601, end: 20240303
  2. NORFLOXACIN [Suspect]
     Active Substance: NORFLOXACIN
     Indication: Prophylaxis
     Dosage: NORFLOXACIN (209A)
     Route: 048
     Dates: start: 20230601, end: 20240303

REACTIONS (1)
  - Rhabdomyolysis [Recovered/Resolved]

NARRATIVE: CASE EVENT DATE: 20240302
